FAERS Safety Report 25941834 (Version 1)
Quarter: 2025Q4

REPORT INFORMATION
  Report Type: Other
  Country: US (occurrence: US)
  Receive Date: 20251020
  Receipt Date: 20251020
  Transmission Date: 20260117
  Serious: Yes (Hospitalization, Other)
  Sender: HLS THERAPEUTICS
  Company Number: US-HLS-202500350

PATIENT
  Age: 61 Year
  Sex: Female

DRUGS (1)
  1. CLOZAPINE [Suspect]
     Active Substance: CLOZAPINE
     Indication: Affective disorder
     Route: 065

REACTIONS (6)
  - Catatonia [Recovered/Resolved]
  - Product use in unapproved indication [Unknown]
  - Major depression [Unknown]
  - Sedation [Unknown]
  - Delusion [Unknown]
  - Pneumonia [Unknown]
